FAERS Safety Report 5005420-2 (Version None)
Quarter: 2006Q2

REPORT INFORMATION
  Report Type: 
  Country: None (occurrence: None)
  Receive Date: 20060518
  Receipt Date: 20051025
  Transmission Date: 20061013
  Serious: Yes (Hospitalization)
  Sender: FDA-Public Use
  Company Number: US-MERCK-0510USA09303

PATIENT
  Age: 65 Year
  Sex: Female
  Weight: 114 kg

DRUGS (27)
  1. VIOXX [Suspect]
     Indication: ARTHRITIS
     Route: 048
     Dates: start: 19990903, end: 20040106
  2. ALLEGRA [Concomitant]
     Route: 065
  3. AMOXICILLIN [Concomitant]
     Route: 048
  4. BACTROBAN [Concomitant]
     Route: 061
  5. CEFUROXIME [Concomitant]
     Route: 065
  6. CEFZIL [Concomitant]
     Route: 065
  7. CEPHALEXIN [Concomitant]
     Route: 065
  8. DIGOXIN [Concomitant]
     Route: 065
  9. ESTRACE [Concomitant]
     Route: 067
  10. FOSAMAX [Concomitant]
     Route: 065
  11. FUROSEMIDE [Concomitant]
     Route: 065
  12. IBUPROFEN [Concomitant]
     Route: 065
  13. KLOR-CON [Concomitant]
     Route: 065
  14. LIPITOR [Concomitant]
     Route: 065
  15. METOCLOPRAMIDE [Concomitant]
     Route: 065
  16. NIASPAN [Concomitant]
     Route: 065
  17. OXISTAT [Concomitant]
     Route: 065
  18. PROGESTERONE [Concomitant]
     Route: 065
  19. SPIRONOLACTONE [Concomitant]
     Route: 065
  20. TIAZAC [Concomitant]
     Route: 065
  21. TOPROL-XL [Concomitant]
     Route: 065
  22. WARFARIN [Concomitant]
     Route: 065
  23. ZESTRIL [Concomitant]
     Route: 065
  24. ZETIA [Concomitant]
     Route: 065
  25. RELAFEN [Concomitant]
     Route: 048
     Dates: start: 19990101
  26. GLUCOSAMINE [Concomitant]
     Route: 048
     Dates: start: 19990101
  27. ASPIRIN [Concomitant]
     Route: 048
     Dates: start: 20000101

REACTIONS (6)
  - CHEST PAIN [None]
  - CORONARY ARTERY DISEASE [None]
  - KNEE ARTHROPLASTY [None]
  - MYOCARDIAL INFARCTION [None]
  - OEDEMA PERIPHERAL [None]
  - SPINAL LAMINECTOMY [None]
